FAERS Safety Report 12586585 (Version 1)
Quarter: 2016Q3

REPORT INFORMATION
  Report Type: Spontaneous
  Country: US (occurrence: None)
  Receive Date: 20160722
  Receipt Date: 20160722
  Transmission Date: 20161109
  Serious: No
  Sender: FDA-Public Use
  Company Number: None

PATIENT
  Age: 70 Year
  Sex: Female
  Weight: 99.61 kg

DRUGS (10)
  1. TENORMIN [Concomitant]
     Active Substance: ATENOLOL
  2. TYLENOL EXTRA STRENGTH [Concomitant]
     Active Substance: ACETAMINOPHEN
  3. FENTANYL 25MCG/HR PAIN [Suspect]
     Active Substance: FENTANYL
     Indication: ARTHRALGIA
     Dosage: 25MCG/HR  (2 BOXES TOTAL) 20 PATCHES 1 PATCH EVERY 72 HOURS ON THE SKIN (ONCE)
     Route: 061
     Dates: start: 20160414, end: 20160415
  4. POTASSIUM [Concomitant]
     Active Substance: POTASSIUM
  5. TYLENOL #4 [Concomitant]
  6. LASIX [Concomitant]
     Active Substance: FUROSEMIDE
  7. VITAMIN B12 [Concomitant]
     Active Substance: CYANOCOBALAMIN
  8. VITAMIN D [Concomitant]
     Active Substance: CHOLECALCIFEROL
  9. ELLIQUIS [Concomitant]
  10. SYNTHROID [Concomitant]
     Active Substance: LEVOTHYROXINE SODIUM

REACTIONS (3)
  - Crying [None]
  - Therapy non-responder [None]
  - Pain [None]

NARRATIVE: CASE EVENT DATE: 20160414
